FAERS Safety Report 17071475 (Version 1)
Quarter: 2019Q4

REPORT INFORMATION
  Report Type: Spontaneous
  Country: US (occurrence: US)
  Receive Date: 20191125
  Receipt Date: 20191125
  Transmission Date: 20200122
  Serious: No
  Sender: FDA-Public Use
  Company Number: US-PFIZER INC-2019505746

PATIENT
  Age: 61 Year
  Sex: Female

DRUGS (3)
  1. HUMULIN N [Concomitant]
     Active Substance: INSULIN HUMAN
     Dosage: UNK (100/ML)
  2. MULTI TABS WOMAN 50+ [Concomitant]
     Dosage: UNK (400-80)
  3. IBRANCE [Suspect]
     Active Substance: PALBOCICLIB
     Indication: BREAST CANCER FEMALE
     Dosage: 125 MG, CYCLIC (1 CAPSULE DAILY FOR 21 DAYS, REPEAT EVERY 28 DAYS)
     Route: 048
     Dates: start: 2019

REACTIONS (1)
  - White blood cell count increased [Recovering/Resolving]

NARRATIVE: CASE EVENT DATE: 2019
